FAERS Safety Report 9351678 (Version 2)
Quarter: 2013Q3

REPORT INFORMATION
  Report Type: Spontaneous
  Country: US (occurrence: US)
  Receive Date: 20130617
  Receipt Date: 20130731
  Transmission Date: 20140515
  Serious: No
  Sender: FDA-Public Use
  Company Number: US-ASTRAZENECA-2013SE41513

PATIENT
  Age: 47 Year
  Sex: Female
  Weight: 81.6 kg

DRUGS (3)
  1. SEROQUEL [Suspect]
     Indication: BIPOLAR I DISORDER
     Route: 048
     Dates: start: 2004, end: 20130603
  2. SEROQUEL [Suspect]
     Indication: BIPOLAR I DISORDER
     Route: 048
     Dates: start: 20130603
  3. SEROQUEL [Suspect]
     Indication: BIPOLAR I DISORDER
     Dosage: GENERIC
     Route: 048

REACTIONS (9)
  - Hunger [Unknown]
  - Sluggishness [Unknown]
  - Weight abnormal [Unknown]
  - Weight decreased [Unknown]
  - Mania [Unknown]
  - Bradyphrenia [Unknown]
  - Back pain [Unknown]
  - Memory impairment [Unknown]
  - Musculoskeletal stiffness [Unknown]
